FAERS Safety Report 15920258 (Version 1)
Quarter: 2019Q1

REPORT INFORMATION
  Report Type: Spontaneous
  Country: US (occurrence: US)
  Receive Date: 20190205
  Receipt Date: 20190205
  Transmission Date: 20190417
  Serious: No
  Sender: FDA-Public Use
  Company Number: US-BIO PRODUCTS LABORATORY LTD-2062167

PATIENT
  Age: 5 Year
  Sex: Male

DRUGS (5)
  1. IFOSFAMIDE. [Suspect]
     Active Substance: IFOSFAMIDE
  2. GENERIC IVIG [Suspect]
     Active Substance: HUMAN IMMUNOGLOBULIN G
     Indication: ENTEROVIRUS INFECTION
     Route: 042
  3. RITUXIMAB. [Suspect]
     Active Substance: RITUXIMAB
  4. CARBOPLATIN. [Suspect]
     Active Substance: CARBOPLATIN
  5. ETOPOSIDE. [Suspect]
     Active Substance: ETOPOSIDE

REACTIONS (7)
  - Cognitive disorder [Recovered/Resolved with Sequelae]
  - Off label use [Recovered/Resolved with Sequelae]
  - Movement disorder [Unknown]
  - Partial seizures [Recovered/Resolved with Sequelae]
  - Altered state of consciousness [Recovered/Resolved with Sequelae]
  - Aphasia [Recovered/Resolved with Sequelae]
  - Pyrexia [Recovered/Resolved with Sequelae]
